FAERS Safety Report 18415674 (Version 1)
Quarter: 2020Q4

REPORT INFORMATION
  Report Type: Spontaneous
  Country: US (occurrence: US)
  Receive Date: 20201022
  Receipt Date: 20201022
  Transmission Date: 20210114
  Serious: Yes (Hospitalization, Other)
  Sender: FDA-Public Use
  Company Number: None

PATIENT
  Sex: Male
  Weight: 84 kg

DRUGS (1)
  1. OBINUTUZUMAB (OBINUTUZUMAB 25MG/ML INJ, VIL, 40ML) [Suspect]
     Active Substance: OBINUTUZUMAB
     Dates: start: 20201013, end: 20201013

REACTIONS (11)
  - Wheezing [None]
  - Blood pressure decreased [None]
  - Heart rate irregular [None]
  - Oxygen saturation decreased [None]
  - Gait disturbance [None]
  - Hyperhidrosis [None]
  - Hypotension [None]
  - Cough [None]
  - Nausea [None]
  - Pallor [None]
  - Vomiting [None]

NARRATIVE: CASE EVENT DATE: 20201013
